FAERS Safety Report 12779505 (Version 1)
Quarter: 2016Q3

REPORT INFORMATION
  Report Type: Report from Study
  Country: GR (occurrence: GR)
  Receive Date: 20160926
  Receipt Date: 20160926
  Transmission Date: 20161109
  Serious: Yes (Death, Other)
  Sender: FDA-Public Use
  Company Number: PHHY2016GR130904

PATIENT
  Age: 58 Year
  Sex: Male

DRUGS (2)
  1. DABRAFENIB [Suspect]
     Active Substance: DABRAFENIB
     Indication: METASTATIC MALIGNANT MELANOMA
     Dosage: 150 MG, BID
     Route: 065
  2. NIVOLUMAB [Suspect]
     Active Substance: NIVOLUMAB
     Indication: PRODUCT USED FOR UNKNOWN INDICATION
     Route: 065

REACTIONS (8)
  - Metastases to lymph nodes [Unknown]
  - Dyspnoea [Unknown]
  - Asthenia [Unknown]
  - Death [Fatal]
  - Ascites [Unknown]
  - Pleural effusion [Unknown]
  - General physical health deterioration [Unknown]
  - Dry skin [Unknown]
